FAERS Safety Report 4589682-1 (Version None)
Quarter: 2005Q1

REPORT INFORMATION
  Report Type: 
  Country: None (occurrence: None)
  Receive Date: 20050217
  Receipt Date: 20050131
  Transmission Date: 20050727
  Serious: Yes (Other)
  Sender: FDA-Public Use
  Company Number: PHHO2005JP02083

PATIENT
  Age: 71 Year
  Sex: Male
  Weight: 59.013 kg

DRUGS (2)
  1. VISUDYNE [Suspect]
     Indication: MACULAR DEGENERATION
     Dosage: 15 MG DAILY IV
     Route: 042
     Dates: start: 20040806, end: 20040806
  2. MAGLEX [Concomitant]

REACTIONS (3)
  - CORNEAL OEDEMA [None]
  - LEUKOPENIA [None]
  - VISUAL ACUITY REDUCED [None]
